FAERS Safety Report 6855667-5 (Version None)
Quarter: 2010Q3

REPORT INFORMATION
  Report Type: 
  Country: None (occurrence: None)
  Receive Date: 20100719
  Receipt Date: 20090914
  Transmission Date: 20110219
  Serious: No
  Sender: FDA-Public Use
  Company Number: US-KINGPHARMUSA00001-K200901142

PATIENT
  Age: 37 Year
  Sex: Female
  Weight: 88.435 kg

DRUGS (1)
  1. LEVOXYL [Suspect]
     Indication: HYPOTHYROIDISM
     Dosage: 137 MCG, QD
     Route: 048
     Dates: start: 20080101

REACTIONS (3)
  - HYPERTHYROIDISM [None]
  - PRURITUS [None]
  - URTICARIA [None]
